FAERS Safety Report 8449009-1 (Version None)
Quarter: 2012Q2

REPORT INFORMATION
  Report Type: 
  Country: None (occurrence: None)
  Receive Date: 20120619
  Receipt Date: 20120614
  Transmission Date: 20120825
  Serious: Yes (Death, Hospitalization)
  Sender: FDA-Public Use
  Company Number: PHHY2012BR051614

PATIENT
  Sex: Male
  Weight: 55 kg

DRUGS (10)
  1. EXELON [Suspect]
     Dosage: 6 MG (1 CAPSULE IN THE MORNING AND 1 CAPSULE AT NIGHT)
     Route: 048
  2. METOPROLOL TARTRATE [Concomitant]
     Indication: HYPERTENSION
     Dosage: 1 DF, BID
     Route: 048
     Dates: start: 20100101
  3. EXELON [Suspect]
     Indication: DEMENTIA ALZHEIMER'S TYPE
     Dosage: 1.5 MG (1 CAPSULE IN THE MORNING AND 1 CAPSULE AT NIGHT)
     Route: 048
     Dates: start: 20060101
  4. MEMANTINE HYDROCHLORIDE [Concomitant]
     Indication: DEMENTIA ALZHEIMER'S TYPE
     Dosage: 1 DF, BID
  5. DIOVAN HCT [Concomitant]
     Indication: HYPERTENSION
     Dosage: 1 DF, DAILY
     Route: 048
     Dates: start: 20100101
  6. EXELON [Suspect]
     Dosage: 1.5 MG (1 CAPSULE IN THE MORNING AND 1 CAPSULE AT NIGHT)
     Route: 048
  7. EXELON [Suspect]
     Dosage: 4.5 MG (1 CAPSULE IN THE MORNING AND 1 CAPSULE AT NIGHT)
     Route: 048
  8. EXELON [Suspect]
     Dosage: 3 MG (1 CAPSULE IN THE MORNING AND 1 CAPSULE AT NIGH)
     Route: 048
  9. EXELON [Suspect]
     Dosage: 4.5 MG (1 CAPSULE IN THE MORNING AND 1 CAPSULE AT NIGHT)
     Route: 048
  10. LERCANIDIPINE [Concomitant]
     Indication: HYPERTENSION
     Dosage: 1 DF, DAILY
     Route: 048
     Dates: start: 20100101

REACTIONS (6)
  - ARRHYTHMIA [None]
  - DYSGEUSIA [None]
  - URINARY TRACT INFECTION [None]
  - DYSPHAGIA [None]
  - SEPSIS [None]
  - WEIGHT DECREASED [None]
